FAERS Safety Report 12838177 (Version 2)
Quarter: 2016Q4

REPORT INFORMATION
  Report Type: Report from Study
  Country: BR (occurrence: BR)
  Receive Date: 20161012
  Receipt Date: 20161026
  Transmission Date: 20170207
  Serious: Yes (Hospitalization)
  Sender: FDA-Public Use
  Company Number: PHHY2016BR138544

PATIENT
  Age: 41 Year
  Sex: Female
  Weight: 56 kg

DRUGS (2)
  1. EXJADE [Suspect]
     Active Substance: DEFERASIROX
     Indication: SICKLE CELL ANAEMIA
     Dosage: 1500 MG, QD (3 TABLETS A DAY)
     Route: 048
  2. HYDREA [Concomitant]
     Active Substance: HYDROXYUREA
     Indication: SICKLE CELL ANAEMIA
     Dosage: 2 TABLET AND 3 TABLET
     Route: 048

REACTIONS (4)
  - Pneumonia [Recovering/Resolving]
  - Urinary tract infection [Recovering/Resolving]
  - Pleural effusion [Recovering/Resolving]
  - Hepatomegaly [Recovering/Resolving]

NARRATIVE: CASE EVENT DATE: 20160923
